FAERS Safety Report 11755831 (Version 1)
Quarter: 2015Q4

REPORT INFORMATION
  Report Type: Spontaneous
  Country: US (occurrence: US)
  Receive Date: 20151119
  Receipt Date: 20151119
  Transmission Date: 20160304
  Serious: Yes (Life-Threatening, Hospitalization)
  Sender: FDA-Public Use
  Company Number: US-ELI_LILLY_AND_COMPANY-US201511003584

PATIENT
  Age: 25 Year
  Sex: Male
  Weight: 80 kg

DRUGS (21)
  1. FLUOXETINE HYDROCHLORIDE. [Suspect]
     Active Substance: FLUOXETINE HYDROCHLORIDE
     Indication: DEPRESSION
     Dosage: 40 MG, QD
     Route: 065
  2. ONDANSETRON [Interacting]
     Active Substance: ONDANSETRON
     Indication: PRODUCT USED FOR UNKNOWN INDICATION
     Dosage: 4 MG, UNKNOWN
     Route: 042
  3. METHYLENE BLUE. [Interacting]
     Active Substance: METHYLENE BLUE
     Indication: PRODUCT USED FOR UNKNOWN INDICATION
     Dosage: 100 MG, UNKNOWN
     Route: 042
  4. METRONIDAZOLE. [Interacting]
     Active Substance: METRONIDAZOLE
     Indication: PRODUCT USED FOR UNKNOWN INDICATION
     Dosage: 500 MG, UNKNOWN
     Route: 042
  5. SUCCINYLCHOLINE [Concomitant]
     Active Substance: SUCCINYLCHOLINE
     Dosage: 100 MG, UNKNOWN
     Route: 042
  6. MIDAZOLAM [Concomitant]
     Active Substance: MIDAZOLAM\MIDAZOLAM HYDROCHLORIDE
     Dosage: 2 MG, UNKNOWN
     Route: 042
  7. FLUOXETINE HYDROCHLORIDE. [Interacting]
     Active Substance: FLUOXETINE HYDROCHLORIDE
     Dosage: 10 MG, QD
     Route: 065
  8. ERTAPENEM [Concomitant]
     Active Substance: ERTAPENEM
     Indication: ANTIBIOTIC PROPHYLAXIS
     Dosage: UNK, UNKNOWN
     Route: 065
  9. HYDROMORPHONE [Concomitant]
     Active Substance: HYDROMORPHONE
     Dosage: 5 MG, UNKNOWN
     Route: 042
  10. PROPOFOL. [Concomitant]
     Active Substance: PROPOFOL
     Dosage: 100 MG, UNKNOWN
     Route: 042
  11. GLYCOPYRROLATE                     /00196201/ [Concomitant]
     Active Substance: GLYCOPYRRONIUM
     Dosage: 0.6 MG, UNKNOWN
     Route: 042
  12. NEOSTIGMINE [Concomitant]
     Active Substance: NEOSTIGMINE
     Dosage: 5 MG, UNKNOWN
     Route: 042
  13. MORPHINE [Concomitant]
     Active Substance: MORPHINE
     Dosage: UNK, UNKNOWN
     Route: 065
  14. ETOMIDATE. [Concomitant]
     Active Substance: ETOMIDATE
     Dosage: 20 MG, UNKNOWN
     Route: 042
  15. SEVOFLURANE. [Concomitant]
     Active Substance: SEVOFLURANE
     Dosage: UNK, UNKNOWN
     Route: 065
  16. OXYGEN. [Concomitant]
     Active Substance: OXYGEN
     Dosage: 1 L, UNKNOWN
     Route: 065
  17. HALOPERIDOL. [Concomitant]
     Active Substance: HALOPERIDOL
     Dosage: 1 MG, UNKNOWN
     Route: 042
  18. FENTANYL. [Interacting]
     Active Substance: FENTANYL
     Indication: PAIN
     Dosage: 100 UG, UNKNOWN
     Route: 042
  19. CEFAZOLIN [Concomitant]
     Active Substance: CEFAZOLIN
     Dosage: 2 G, UNKNOWN
     Route: 042
  20. METOCLOPRAMIDE. [Interacting]
     Active Substance: METOCLOPRAMIDE
     Indication: PRODUCT USED FOR UNKNOWN INDICATION
     Dosage: 10 MG, UNKNOWN
     Route: 042
  21. CISATRACURIUM. [Concomitant]
     Active Substance: CISATRACURIUM
     Dosage: 2 MG, UNKNOWN
     Route: 042

REACTIONS (8)
  - Appendicitis perforated [Unknown]
  - Serotonin syndrome [Unknown]
  - Blood creatinine increased [Recovered/Resolved]
  - Metabolic acidosis [Unknown]
  - White blood cell count increased [Unknown]
  - Drug interaction [Unknown]
  - Rhabdomyolysis [Unknown]
  - Pseudomonal sepsis [Unknown]
